FAERS Safety Report 18031320 (Version 1)
Quarter: 2020Q3

REPORT INFORMATION
  Report Type: Spontaneous
  Country: US (occurrence: US)
  Receive Date: 20200715
  Receipt Date: 20200715
  Transmission Date: 20201103
  Serious: No
  Sender: FDA-Public Use
  Company Number: None

PATIENT

DRUGS (1)
  1. LOSARTAN. [Suspect]
     Active Substance: LOSARTAN

REACTIONS (4)
  - Product physical issue [None]
  - Product size issue [None]
  - Product dispensing error [None]
  - Product dosage form issue [None]

NARRATIVE: CASE EVENT DATE: 2020
